FAERS Safety Report 14856368 (Version 1)
Quarter: 2018Q2

REPORT INFORMATION
  Report Type: Spontaneous
  Country: US (occurrence: US)
  Receive Date: 20180507
  Receipt Date: 20180507
  Transmission Date: 20180711
  Serious: No
  Sender: FDA-Public Use
  Company Number: US-ROCHE-2034938

PATIENT
  Sex: Male

DRUGS (5)
  1. CITALOPRAM [Concomitant]
     Active Substance: CITALOPRAM HYDROBROMIDE
  2. MELOXICAM. [Concomitant]
     Active Substance: MELOXICAM
     Route: 065
  3. OXYCODONE [Concomitant]
     Active Substance: OXYCODONE
  4. ESBRIET [Suspect]
     Active Substance: PIRFENIDONE
     Indication: IDIOPATHIC PULMONARY FIBROSIS
     Dosage: ONGOING; YES
     Route: 048
     Dates: start: 20160105
  5. DOXYCYCLIN [Concomitant]
     Active Substance: DOXYCYCLINE

REACTIONS (3)
  - Sinusitis [Unknown]
  - Lower respiratory tract congestion [Unknown]
  - Cough [Unknown]
